FAERS Safety Report 8737840 (Version 2)
Quarter: 2013Q1

REPORT INFORMATION
  Report Type: Spontaneous
  Country: US (occurrence: US)
  Receive Date: 20120822
  Receipt Date: 20130111
  Transmission Date: 20140127
  Serious: No
  Sender: FDA-Public Use
  Company Number: US-009507513-1207USA010863

PATIENT
  Age: 16 Year
  Sex: Female
  Weight: 55.78 kg

DRUGS (1)
  1. IMPLANON [Suspect]
     Indication: CONTRACEPTION
     Dosage: UNK
     Route: 059
     Dates: start: 20120514

REACTIONS (3)
  - Metrorrhagia [Unknown]
  - Headache [Unknown]
  - Rash [Unknown]
